FAERS Safety Report 10245352 (Version 1)
Quarter: 2014Q2

REPORT INFORMATION
  Report Type: Spontaneous
  Country: BR (occurrence: BR)
  Receive Date: 20140618
  Receipt Date: 20140618
  Transmission Date: 20141212
  Serious: Yes (Life-Threatening, Hospitalization, Disabling)
  Sender: FDA-Public Use
  Company Number: BR-ROCHE-1419953

PATIENT
  Sex: Female

DRUGS (2)
  1. AVASTIN [Suspect]
     Indication: LUNG CANCER METASTATIC
     Route: 065
     Dates: start: 2008
  2. DOCETAXEL [Concomitant]

REACTIONS (2)
  - Metastases to bone [Not Recovered/Not Resolved]
  - Metastasis [Not Recovered/Not Resolved]
